FAERS Safety Report 6715622-2 (Version None)
Quarter: 2010Q2

REPORT INFORMATION
  Report Type: 
  Country: None (occurrence: None)
  Receive Date: 20100507
  Receipt Date: 20100423
  Transmission Date: 20101027
  Serious: Yes (Other)
  Sender: FDA-Public Use
  Company Number: GR-ROCHE-699366

PATIENT
  Age: 24 Year
  Sex: Female
  Weight: 60 kg

DRUGS (1)
  1. ROACCUTAN [Suspect]
     Route: 048
     Dates: start: 20091201

REACTIONS (1)
  - WHITE BLOOD CELL DISORDER [None]
